FAERS Safety Report 6447248-2 (Version None)
Quarter: 2009Q4

REPORT INFORMATION
  Report Type: 
  Country: None (occurrence: None)
  Receive Date: 20091119
  Receipt Date: 20091109
  Transmission Date: 20100525
  Serious: Yes (Hospitalization, Other)
  Sender: FDA-Public Use
  Company Number: GB-PFIZER INC-2009190885

PATIENT
  Age: 52 Year
  Sex: Female
  Weight: 73 kg

DRUGS (3)
  1. FESOTERODINE [Suspect]
     Indication: HYPERTONIC BLADDER
     Dosage: 4 MG, 1X/DAY
     Route: 048
     Dates: start: 20090221
  2. EVOREL [Concomitant]
     Dosage: UNK
     Route: 062
     Dates: start: 19980101
  3. TESTOSTERONE [Concomitant]
     Dosage: UNK
     Route: 058
     Dates: start: 19980101

REACTIONS (1)
  - GASTRITIS [None]
